FAERS Safety Report 21026103 (Version 2)
Quarter: 2022Q3

REPORT INFORMATION
  Report Type: Report from Study
  Country: FR (occurrence: FR)
  Receive Date: 20220630
  Receipt Date: 20220708
  Transmission Date: 20221026
  Serious: No
  Sender: FDA-Public Use
  Company Number: FR-BRISTOL-MYERS SQUIBB COMPANY-2022-063432

PATIENT
  Age: 26 Year
  Sex: Female

DRUGS (3)
  1. APIXABAN [Suspect]
     Active Substance: APIXABAN
     Indication: Embolism venous
     Dosage: APIXABAN THERAPY AT 5 MG TWICE DAILY OR 2.5 MG TWICE DAILY ACCORDING TO THE RANDOMIZATION GROUP.
     Route: 048
     Dates: start: 20210921, end: 20220614
  2. NIVOLUMAB [Suspect]
     Active Substance: NIVOLUMAB
     Indication: Metastatic malignant melanoma
     Route: 042
     Dates: start: 20210423, end: 20220421
  3. ALPRAZOLAM [Concomitant]
     Active Substance: ALPRAZOLAM
     Indication: Anxiety
     Route: 048
     Dates: start: 20220104

REACTIONS (1)
  - Maternal exposure during pregnancy [Recovered/Resolved]
